FAERS Safety Report 23462582 (Version 1)
Quarter: 2024Q1

REPORT INFORMATION
  Report Type: Spontaneous
  Country: US (occurrence: None)
  Receive Date: 20240131
  Receipt Date: 20240131
  Transmission Date: 20240409
  Serious: Yes (Death)
  Sender: FDA-Public Use
  Company Number: None

PATIENT
  Sex: Male

DRUGS (9)
  1. DEXAMETHASONE SODIUM PHOSPHATE [Suspect]
     Active Substance: DEXAMETHASONE PHOSPHATE\DEXAMETHASONE SODIUM PHOSPHATE
     Indication: Rectal cancer
     Dosage: OTHER FREQUENCY : DAYS 1,8,15 Y 22;?
     Route: 042
     Dates: start: 202311
  2. FAMOTIDINE [Suspect]
     Active Substance: FAMOTIDINE
     Indication: Rectal cancer
     Dosage: OTHER FREQUENCY : DAYS 1,8, 15 Y 22;?
     Route: 042
     Dates: start: 202311
  3. CAMPTOSAR [Concomitant]
  4. LEUCOVORIN  CALS [Concomitant]
  5. IRINOTECAN [Concomitant]
  6. DIPHENHYDRAMINE [Concomitant]
  7. ERBITUX [Concomitant]
     Active Substance: CETUXIMAB
  8. ONDANSETRON [Concomitant]
  9. ERBITUX [Concomitant]

REACTIONS (1)
  - Death [None]
